FAERS Safety Report 8955675 (Version 2)
Quarter: 2012Q4

REPORT INFORMATION
  Report Type: 
  Country: US (occurrence: US)
  Receive Date: 20121207
  Receipt Date: 20121207
  Transmission Date: 20130627
  Serious: No
  Sender: FDA-Public Use
  Company Number: US-009507513-1212USA002774

PATIENT
  Age: 55 Year
  Sex: Male
  Weight: 68.27 kg

DRUGS (2)
  1. LOTRIMIN AF [Suspect]
     Indication: NAIL DISCOLOURATION
     Dosage: UNK
     Route: 061
     Dates: start: 20121001, end: 20121007
  2. LOTRIMIN AF [Suspect]
     Indication: MEDICAL OBSERVATION

REACTIONS (4)
  - Condition aggravated [Not Recovered/Not Resolved]
  - Drug ineffective [Unknown]
  - Drug ineffective for unapproved indication [Unknown]
  - Off label use [Recovered/Resolved]
